FAERS Safety Report 11316714 (Version 4)
Quarter: 2015Q3

REPORT INFORMATION
  Report Type: Spontaneous
  Country: US (occurrence: US)
  Receive Date: 20150728
  Receipt Date: 20150917
  Transmission Date: 20151125
  Serious: No
  Sender: FDA-Public Use
  Company Number: US-PFIZER INC-2015238618

PATIENT
  Age: 60 Year
  Sex: Male
  Weight: 92 kg

DRUGS (5)
  1. CELONTIN [Suspect]
     Active Substance: METHSUXIMIDE
     Indication: SEIZURE
     Dosage: 300 MG, 1X/DAY (AT BED)
     Route: 048
     Dates: start: 20150701, end: 20150702
  2. ZONEGRAN [Suspect]
     Active Substance: ZONISAMIDE
     Indication: SEIZURE
     Dosage: 600 MG, 1X/DAY (IN THE MORNING AND 3 AT BEDTIME)
  3. KEPPRA [Suspect]
     Active Substance: LEVETIRACETAM
     Indication: SEIZURE
     Dosage: 500 MG, UNK (500MG TABLET AM AND BEDTIME)
  4. CELONTIN [Suspect]
     Active Substance: METHSUXIMIDE
     Dosage: 300 MG, 2X/DAY (ONE 300MG CAPSULE, IN THE AM AND ONE CAPSULE AT BEDTIME)
     Route: 048
     Dates: start: 20150703
  5. CELONTIN [Suspect]
     Active Substance: METHSUXIMIDE
     Dosage: 300 MG, 1X/DAY (AT BED TIME)
     Dates: start: 201507

REACTIONS (12)
  - Abdominal pain upper [Not Recovered/Not Resolved]
  - Asthenia [Not Recovered/Not Resolved]
  - Repetitive speech [Not Recovered/Not Resolved]
  - Cardiac disorder [Unknown]
  - Arthralgia [Not Recovered/Not Resolved]
  - Gait disturbance [Not Recovered/Not Resolved]
  - Somnolence [Not Recovered/Not Resolved]
  - Drug administration error [Unknown]
  - Headache [Not Recovered/Not Resolved]
  - Myalgia [Not Recovered/Not Resolved]
  - Pain [Not Recovered/Not Resolved]
  - Bone pain [Not Recovered/Not Resolved]

NARRATIVE: CASE EVENT DATE: 20150703
